FAERS Safety Report 24204192 (Version 5)
Quarter: 2025Q3

REPORT INFORMATION
  Report Type: Report from Study
  Country: US (occurrence: US)
  Receive Date: 20240813
  Receipt Date: 20250810
  Transmission Date: 20251021
  Serious: Yes (Hospitalization)
  Sender: ALEXION PHARMACEUTICALS
  Company Number: US-ALXN-202408GLO000310US

PATIENT
  Age: 81 Year
  Sex: Male

DRUGS (14)
  1. ULTOMIRIS [Suspect]
     Active Substance: RAVULIZUMAB-CWVZ
     Indication: Myasthenia gravis
     Route: 065
     Dates: start: 20231108, end: 20231108
  2. ULTOMIRIS [Suspect]
     Active Substance: RAVULIZUMAB-CWVZ
     Route: 065
  3. AMIODARONE [Concomitant]
     Active Substance: AMIODARONE
     Indication: Atrial fibrillation
     Dosage: 200 MILLIGRAM, BID
     Dates: start: 20240608
  4. ARFORMOTEROL [Concomitant]
     Active Substance: ARFORMOTEROL
     Indication: Chronic obstructive pulmonary disease
     Dosage: 15 MCG/2ML, BID
     Dates: start: 20240608, end: 20240725
  5. ATROVENT HFA [Concomitant]
     Active Substance: IPRATROPIUM BROMIDE
     Indication: Chronic obstructive pulmonary disease
     Dosage: 17 MICROGRAM, BID
     Dates: start: 20240608, end: 20240725
  6. BUDESONIDE [Concomitant]
     Active Substance: BUDESONIDE
     Indication: Wheezing
     Dosage: 0.5 MILLIGRAM PER MILLILITRE, BID
     Dates: start: 20240608, end: 20240725
  7. DEXTROMETHORPHAN\GUAIFENESIN [Concomitant]
     Active Substance: DEXTROMETHORPHAN\GUAIFENESIN
     Indication: Chronic obstructive pulmonary disease
     Dates: start: 20240608, end: 20240725
  8. DIGOXIN [Concomitant]
     Active Substance: DIGOXIN
     Indication: Atrial fibrillation
     Dosage: 125 MICROGRAM, QD
     Dates: start: 20240608
  9. FUROSEMIDE [Concomitant]
     Active Substance: FUROSEMIDE
     Indication: Cardiac failure
     Dosage: 40 GRAM, QD
     Dates: start: 20240608, end: 20240728
  10. LEVOTHYROXINE [Concomitant]
     Active Substance: LEVOTHYROXINE
     Indication: Hypothyroidism
     Dosage: 100 MICROGRAM, QD
     Dates: start: 20240625, end: 20240725
  11. ROSUVASTATIN [Concomitant]
     Active Substance: ROSUVASTATIN
     Dosage: 20 MILLIGRAM, QD
     Dates: start: 20240806
  12. CEFPODOXIME PROXETIL [Concomitant]
     Active Substance: CEFPODOXIME PROXETIL
     Indication: Urinary tract infection
     Dosage: 200 MILLIGRAM, BID
     Dates: start: 20240715, end: 20240725
  13. CIPROFLOXACIN [Concomitant]
     Active Substance: CIPROFLOXACIN
     Indication: Urinary tract infection
     Dosage: 500 MILLIGRAM, QD
     Dates: start: 20240806
  14. TRAZODONE [Concomitant]
     Active Substance: TRAZODONE HYDROCHLORIDE
     Indication: Sleep disorder
     Dosage: 50 MILLIGRAM, QD
     Dates: start: 20240810

REACTIONS (1)
  - Urinary tract infection [Recovered/Resolved]

NARRATIVE: CASE EVENT DATE: 20240803
